FAERS Safety Report 23783001 (Version 2)
Quarter: 2024Q2

REPORT INFORMATION
  Report Type: Report from Study
  Country: US (occurrence: US)
  Receive Date: 20240425
  Receipt Date: 20240522
  Transmission Date: 20240716
  Serious: Yes (Hospitalization)
  Sender: FDA-Public Use
  Company Number: US-TAKEDA-2024TUS026103

PATIENT
  Age: 69 Year
  Sex: Male
  Weight: 65.687 kg

DRUGS (6)
  1. FRUQUINTINIB [Suspect]
     Active Substance: FRUQUINTINIB
     Indication: Colon cancer
     Dosage: 5 MILLIGRAM, QD
     Route: 048
     Dates: start: 20240304
  2. FRUQUINTINIB [Suspect]
     Active Substance: FRUQUINTINIB
     Indication: Lung neoplasm malignant
     Dosage: 5 MILLIGRAM, QD
     Route: 048
  3. FRUQUINTINIB [Suspect]
     Active Substance: FRUQUINTINIB
     Indication: Colorectal cancer
     Dosage: 5 MILLIGRAM, QD
     Route: 048
  4. FRUQUINTINIB [Suspect]
     Active Substance: FRUQUINTINIB
     Dosage: 5 MILLIGRAM, QD
     Route: 048
  5. LIDOCAINE [Suspect]
     Active Substance: LIDOCAINE
     Indication: Product used for unknown indication
     Dosage: UNK
     Route: 065
  6. HYDROCODONE [Suspect]
     Active Substance: HYDROCODONE
     Indication: Pain
     Dosage: 5-325 MILLIGRAM
     Route: 065

REACTIONS (20)
  - Tooth infection [Unknown]
  - Hypoaesthesia [Unknown]
  - Hyperkeratosis [Unknown]
  - Pruritus [Unknown]
  - Sleep disorder [Unknown]
  - Arthralgia [Unknown]
  - Malaise [Unknown]
  - Pain in extremity [Unknown]
  - Throat irritation [Unknown]
  - Hypoaesthesia oral [Unknown]
  - Dyspnoea [Unknown]
  - Oropharyngeal pain [Unknown]
  - Cough [Unknown]
  - Abscess [Unknown]
  - Dysphonia [Unknown]
  - Weight decreased [Unknown]
  - Tooth abscess [Unknown]
  - Gait disturbance [Unknown]
  - Fatigue [Unknown]
  - Speech disorder [Unknown]

NARRATIVE: CASE EVENT DATE: 20240301
